FAERS Safety Report 20590035 (Version 1)
Quarter: 2022Q1

REPORT INFORMATION
  Report Type: Spontaneous
  Country: US (occurrence: US)
  Receive Date: 20220314
  Receipt Date: 20220314
  Transmission Date: 20220423
  Serious: Yes (Other)
  Sender: FDA-Public Use
  Company Number: US-GW PHARMA-202203USGW01224

PATIENT
  Age: 56 Year
  Sex: Female

DRUGS (1)
  1. EPIDIOLEX [Suspect]
     Active Substance: CANNABIDIOL
     Indication: Lennox-Gastaut syndrome
     Dosage: 430 MILLIGRAM
     Route: 048
     Dates: start: 202202

REACTIONS (2)
  - Clavicle fracture [Unknown]
  - Seizure [Unknown]

NARRATIVE: CASE EVENT DATE: 20220222
